FAERS Safety Report 7980822-0 (Version None)
Quarter: 2011Q4

REPORT INFORMATION
  Report Type: 
  Country: None (occurrence: None)
  Receive Date: 20111214
  Receipt Date: 20111205
  Transmission Date: 20120403
  Serious: Yes (Hospitalization, Other)
  Sender: FDA-Public Use
  Company Number: US-ASTRAZENECA-2011SE73788

PATIENT
  Sex: Female

DRUGS (3)
  1. PULMICORT FLEXHALER [Suspect]
     Route: 055
  2. SYMBICORT [Suspect]
     Route: 055
  3. ARIMIDEX [Suspect]
     Route: 048

REACTIONS (3)
  - PNEUMOCONIOSIS [None]
  - BREAST CANCER FEMALE [None]
  - CHRONIC OBSTRUCTIVE PULMONARY DISEASE [None]
